FAERS Safety Report 25369120 (Version 1)
Quarter: 2025Q2

REPORT INFORMATION
  Report Type: Spontaneous
  Country: US (occurrence: US)
  Receive Date: 20250528
  Receipt Date: 20250528
  Transmission Date: 20250716
  Serious: Yes (Other)
  Sender: HERON
  Company Number: US-HERON THERAPEUTICS, INC-HRTX-2025-001089

PATIENT
  Sex: Female

DRUGS (2)
  1. ZYNRELEF [Suspect]
     Active Substance: BUPIVACAINE\MELOXICAM
     Indication: Postoperative analgesia
     Route: 065
  2. ZYNRELEF [Suspect]
     Active Substance: BUPIVACAINE\MELOXICAM
     Indication: Knee arthroplasty

REACTIONS (2)
  - Pain [Unknown]
  - Iatrogenic injury [Unknown]

NARRATIVE: CASE EVENT DATE: 20250514
